FAERS Safety Report 12158016 (Version 1)
Quarter: 2016Q1

REPORT INFORMATION
  Report Type: Spontaneous
  Country: US (occurrence: US)
  Receive Date: 20160308
  Receipt Date: 20160308
  Transmission Date: 20160526
  Serious: Yes (Other)
  Sender: FDA-Public Use
  Company Number: US-JNJFOC-20150207888

PATIENT
  Age: 65 Year
  Sex: Male

DRUGS (3)
  1. IMBRUVICA [Suspect]
     Active Substance: IBRUTINIB
     Indication: CHRONIC LYMPHOCYTIC LEUKAEMIA
     Route: 048
     Dates: start: 20140531
  2. ALLOPURINOL. [Concomitant]
     Active Substance: ALLOPURINOL
  3. FLOMAX [Concomitant]
     Active Substance: TAMSULOSIN HYDROCHLORIDE

REACTIONS (3)
  - Atrial fibrillation [Unknown]
  - Tenosynovitis [Unknown]
  - Fatigue [Unknown]

NARRATIVE: CASE EVENT DATE: 20141010
